FAERS Safety Report 25325489 (Version 1)
Quarter: 2025Q2

REPORT INFORMATION
  Report Type: Spontaneous
  Country: DE (occurrence: DE)
  Receive Date: 20250516
  Receipt Date: 20250516
  Transmission Date: 20250716
  Serious: Yes (Life-Threatening, Other)
  Sender: MYLAN
  Company Number: DE-002147023-NVSC2025DE071234

PATIENT
  Sex: Male

DRUGS (3)
  1. CYCLOSPORINE [Suspect]
     Active Substance: CYCLOSPORINE
     Indication: Haemophagocytic lymphohistiocytosis
  2. CANAKINUMAB [Suspect]
     Active Substance: CANAKINUMAB
     Indication: Haemophagocytic lymphohistiocytosis
     Dosage: 340 MILLIGRAM, Q2W (340 MG, Q2W)
  3. RUXOLITINIB [Suspect]
     Active Substance: RUXOLITINIB
     Indication: Haemophagocytic lymphohistiocytosis
     Dosage: 10 MILLIGRAM, BID (2 X 10 MG/D)

REACTIONS (5)
  - Pulmonary hypertension [Unknown]
  - Haemophagocytic lymphohistiocytosis [Unknown]
  - Disease recurrence [Unknown]
  - Serum ferritin increased [Unknown]
  - Off label use [Unknown]
